FAERS Safety Report 14713824 (Version 1)
Quarter: 2018Q2

REPORT INFORMATION
  Report Type: Report from Study
  Country: AR (occurrence: AR)
  Receive Date: 20180404
  Receipt Date: 20180404
  Transmission Date: 20180711
  Serious: Yes (Death, Hospitalization, Other)
  Sender: FDA-Public Use
  Company Number: PHHY2018AR052919

PATIENT
  Sex: Male

DRUGS (1)
  1. ENTRESTO [Suspect]
     Active Substance: SACUBITRIL\VALSARTAN
     Indication: CARDIAC FAILURE
     Dosage: 0.5 DF (50 MG), UNK (HALF TABLET OF ENTRESTO IN THE MORNING AND HALF TABLET IN THE AFTERNOON)
     Route: 065
     Dates: start: 201704

REACTIONS (14)
  - Scratch [Unknown]
  - Haemorrhage [Unknown]
  - Wrong technique in product usage process [Unknown]
  - Syncope [Unknown]
  - Micturition urgency [Unknown]
  - Agitation [Unknown]
  - Cardio-respiratory arrest [Fatal]
  - Respiratory failure [Fatal]
  - Nosocomial infection [Unknown]
  - Swelling [Unknown]
  - Fall [Unknown]
  - Face injury [Unknown]
  - Asthenia [Unknown]
  - Hypertension [Unknown]
